FAERS Safety Report 4647890-5 (Version None)
Quarter: 2005Q2

REPORT INFORMATION
  Report Type: 
  Country: None (occurrence: None)
  Receive Date: 20050428
  Receipt Date: 20050331
  Transmission Date: 20051028
  Serious: Yes (Death)
  Sender: FDA-Public Use
  Company Number: PHEH2005US03878

PATIENT
  Age: 40 Year
  Sex: Male

DRUGS (1)
  1. ELIDEL [Suspect]
     Indication: VITILIGO
     Dosage: UNK, UNK
     Route: 061
     Dates: start: 20030101, end: 20030601

REACTIONS (5)
  - BRAIN NEOPLASM MALIGNANT [None]
  - LEUKODERMA [None]
  - LYMPHADENOPATHY [None]
  - MALIGNANT MELANOMA [None]
  - MASS [None]
